FAERS Safety Report 16871498 (Version 4)
Quarter: 2020Q2

REPORT INFORMATION
  Report Type: Spontaneous
  Country: GB (occurrence: GB)
  Receive Date: 20191001
  Receipt Date: 20200504
  Transmission Date: 20200713
  Serious: Yes (Death, Hospitalization, Other)
  Sender: FDA-Public Use
  Company Number: GB-AUROBINDO-AUR-APL-2019-062975

PATIENT
  Age: 57 Year
  Sex: Male

DRUGS (6)
  1. AMLODIPINE [Concomitant]
     Active Substance: AMLODIPINE BESYLATE
     Indication: HYPERTENSION
     Dosage: UNK
     Route: 065
  2. ZARONTIN [Concomitant]
     Active Substance: ETHOSUXIMIDE
     Indication: PRODUCT USED FOR UNKNOWN INDICATION
     Dosage: 780 MILLIGRAM, DAILY
     Route: 065
  3. RAMIPRIL. [Concomitant]
     Active Substance: RAMIPRIL
     Indication: HYPERTENSION
     Dosage: UNK
     Route: 065
  4. RISPERIDONE. [Suspect]
     Active Substance: RISPERIDONE
     Indication: PRODUCT USED FOR UNKNOWN INDICATION
     Dosage: 1500 MICROGRAM
     Route: 065
     Dates: start: 2019
  5. RISPERDAL [Suspect]
     Active Substance: RISPERIDONE
     Indication: SEIZURE
     Dosage: 12 MILLIGRAM, ONCE A DAY
     Route: 065
     Dates: start: 2004, end: 2019
  6. RISPERIDONE FILM-COATED TABLETS [Suspect]
     Active Substance: RISPERIDONE
     Indication: SEIZURE
     Dosage: 12 MILLIGRAM, ONCE A DAY
     Route: 065
     Dates: start: 2004, end: 201908

REACTIONS (29)
  - Colon cancer [Fatal]
  - Somnolence [Unknown]
  - Insomnia [Unknown]
  - Epilepsy [Unknown]
  - Cough [Unknown]
  - Gynaecomastia [Unknown]
  - Abnormal weight gain [Unknown]
  - Vomiting [Unknown]
  - Hyperglycaemia [Unknown]
  - Dizziness [Unknown]
  - Increased appetite [Unknown]
  - Urinary tract infection [Unknown]
  - Sleep apnoea syndrome [Unknown]
  - Feeling hot [Unknown]
  - Lung neoplasm malignant [Unknown]
  - Product use in unapproved indication [Unknown]
  - Off label use [Unknown]
  - Seizure [Unknown]
  - Dyskinesia [Unknown]
  - Rash pruritic [Not Recovered/Not Resolved]
  - Hypotension [Unknown]
  - Gastric cancer [Fatal]
  - Hyperhidrosis [Unknown]
  - Pollakiuria [Unknown]
  - Dyspnoea [Unknown]
  - Vision blurred [Unknown]
  - Breast enlargement [Unknown]
  - Nausea [Unknown]
  - Disturbance in attention [Unknown]

NARRATIVE: CASE EVENT DATE: 2017
